FAERS Safety Report 9867730 (Version 2)
Quarter: 2014Q1

REPORT INFORMATION
  Report Type: Report from Study
  Country: CA (occurrence: CA)
  Receive Date: 20140204
  Receipt Date: 20140204
  Transmission Date: 20141002
  Serious: Yes (Hospitalization)
  Sender: FDA-Public Use
  Company Number: CA-SANOFI-AVENTIS-2011SA082536

PATIENT
  Age: 60 Year
  Sex: Female
  Weight: 55.6 kg

DRUGS (17)
  1. TERIFLUNOMIDE [Suspect]
     Indication: MULTIPLE SCLEROSIS RELAPSE
     Dosage: DOSE:1 UNIT(S)
     Route: 048
     Dates: start: 20100111
  2. CLINDAMYCIN [Suspect]
     Indication: INFECTION PROPHYLAXIS
     Dates: start: 201110, end: 20111021
  3. VITAMIN B12 [Concomitant]
     Indication: SUPPLEMENTATION THERAPY
     Route: 048
     Dates: start: 20110412
  4. CELEXA [Concomitant]
     Indication: DEPRESSION
     Route: 048
     Dates: start: 200409
  5. CELEXA [Concomitant]
     Indication: ANXIETY
     Route: 048
     Dates: start: 200409
  6. CLONAZEPAM [Concomitant]
     Indication: RESTLESS LEGS SYNDROME
     Route: 048
     Dates: start: 200606
  7. RIZATRIPTAN [Concomitant]
     Indication: MIGRAINE
     Route: 048
     Dates: start: 200511
  8. TYLENOL [Concomitant]
     Indication: MIGRAINE
     Dosage: DOSE:1 UNIT(S)
     Route: 048
     Dates: start: 200707
  9. YASMIN [Concomitant]
     Indication: ORAL CONTRACEPTION
     Dosage: DOSE:1 UNIT(S)
     Route: 048
     Dates: start: 20080112
  10. CITALOPRAM [Concomitant]
     Indication: DEPRESSION
     Route: 048
     Dates: start: 200009
  11. CITALOPRAM [Concomitant]
     Indication: ANXIETY
     Route: 048
     Dates: start: 200009
  12. GABAPENTIN [Concomitant]
     Indication: RESTLESS LEGS SYNDROME
     Route: 048
     Dates: start: 200606
  13. OMEPRAZOLE [Concomitant]
     Indication: DYSPEPSIA
     Route: 048
     Dates: start: 20080317
  14. DITROPAN [Concomitant]
     Indication: POLLAKIURIA
     Dosage: DOSE:1 UNIT(S)
     Route: 048
     Dates: start: 20080514
  15. LYRICA [Concomitant]
     Indication: BURNING SENSATION
     Route: 048
     Dates: start: 20090720
  16. PROPRANOLOL [Concomitant]
     Indication: MIGRAINE
     Route: 048
     Dates: start: 20110528
  17. DETROL [Concomitant]

REACTIONS (1)
  - Clostridium difficile colitis [Recovered/Resolved]
